FAERS Safety Report 5889934-9 (Version None)
Quarter: 2008Q3

REPORT INFORMATION
  Report Type: 
  Country: None (occurrence: None)
  Receive Date: 20080919
  Receipt Date: 20080916
  Transmission Date: 20090109
  Serious: Yes (Other)
  Sender: FDA-Public Use
  Company Number: PHEH2008US02048

PATIENT
  Age: 68 Year
  Sex: Female

DRUGS (17)
  1. RECLAST [Suspect]
     Indication: OSTEOPOROSIS
     Dosage: 5 MG, ONCE YEARLY
     Dates: start: 20080208, end: 20080208
  2. VITAMIN D [Concomitant]
     Dosage: 15000 IU, BID
  3. CALCIUM GLUCONATE [Concomitant]
     Dosage: 750 MG, BID
  4. NEXIUM [Concomitant]
     Dosage: 40 MG, QD
  5. SYNTHROID [Concomitant]
     Dosage: 112 UG, QD
  6. BECONASE [Concomitant]
     Dosage: 2 PUFFS, BID
  7. CARDIZEM LA /OLD FORM/ [Concomitant]
     Dosage: 180 MG, QD
  8. ALLEGRA [Concomitant]
     Dosage: 180 MG, QD
  9. CELEBREX [Concomitant]
     Dosage: 200 MG, QD
  10. POTASSIUM CHLORIDE [Concomitant]
     Dosage: 10 MBQ, QD
  11. HYDROCHLOROTHIAZIDE [Concomitant]
     Dosage: 25 MG, QD
  12. SINGULAIR [Concomitant]
     Dosage: 10 MG, QD
  13. WELCHOL [Concomitant]
     Dosage: 625 MG, BID
  14. OSTEO BI-FLEX [Concomitant]
     Dosage: UNK, BID
  15. ASTELIN [Concomitant]
     Dosage: 2 PUFFS, BID, PRN
  16. ASPIRIN [Concomitant]
     Dosage: 81 MG, BID
  17. LORTAB [Concomitant]
     Indication: PAIN
     Dosage: UNK, PRN

REACTIONS (10)
  - ALANINE AMINOTRANSFERASE INCREASED [None]
  - ARTHRALGIA [None]
  - ASPARTATE AMINOTRANSFERASE INCREASED [None]
  - BALANCE DISORDER [None]
  - BLOOD ALKALINE PHOSPHATASE INCREASED [None]
  - BLOOD SODIUM DECREASED [None]
  - CATARACT [None]
  - DIZZINESS [None]
  - MYALGIA [None]
  - VISUAL ACUITY REDUCED [None]
